FAERS Safety Report 9147391 (Version 2)
Quarter: 2013Q2

REPORT INFORMATION
  Report Type: Spontaneous
  Country: CN (occurrence: CN)
  Receive Date: 20130307
  Receipt Date: 20130409
  Transmission Date: 20140414
  Serious: Yes (Other)
  Sender: FDA-Public Use
  Company Number: CN-GLAXOSMITHKLINE-B0870850A

PATIENT
  Sex: Male

DRUGS (1)
  1. HEPTODIN [Suspect]
     Indication: CHRONIC HEPATITIS B
     Dosage: 100MG PER DAY
     Route: 048

REACTIONS (2)
  - Chronic hepatitis B [Unknown]
  - Suspected counterfeit product [Unknown]
